FAERS Safety Report 5958985-8 (Version None)
Quarter: 2008Q4

REPORT INFORMATION
  Report Type: 
  Country: None (occurrence: None)
  Receive Date: 20081107
  Receipt Date: 20080722
  Transmission Date: 20090506
  Serious: Yes (Other)
  Sender: FDA-Public Use
  Company Number: 0808910US

PATIENT
  Age: 67 Year
  Sex: Male

DRUGS (2)
  1. BLEPHAMIDE [Suspect]
     Indication: CONJUNCTIVITIS
     Dosage: OPHTHALMIC
     Route: 047
     Dates: start: 20070701, end: 20080717
  2. ACULAR (KETOROLAC TROMETHAMINE) EYE DROP, SOLUTION [Concomitant]

REACTIONS (2)
  - INAPPROPRIATE SCHEDULE OF DRUG ADMINISTRATION [None]
  - INTRAOCULAR PRESSURE INCREASED [None]
